FAERS Safety Report 5900438-7 (Version None)
Quarter: 2008Q3

REPORT INFORMATION
  Report Type: 
  Country: None (occurrence: None)
  Receive Date: 20080926
  Receipt Date: 20080916
  Transmission Date: 20090109
  Serious: Yes (Other)
  Sender: FDA-Public Use
  Company Number: JP-PFIZER INC-2008056745

PATIENT
  Sex: Male
  Weight: 71.5 kg

DRUGS (10)
  1. CABASER [Suspect]
     Indication: PARKINSON'S DISEASE
     Route: 048
     Dates: start: 20080702, end: 20080704
  2. NORVASC [Interacting]
     Route: 048
     Dates: start: 20070912
  3. EBRANTIL [Interacting]
     Dosage: DAILY DOSE:60MG
     Route: 048
     Dates: start: 20071128
  4. BLOPRESS [Interacting]
     Route: 048
     Dates: end: 20080704
  5. CONIEL [Interacting]
     Dosage: DAILY DOSE:8MG
     Route: 048
     Dates: end: 20080704
  6. CARBIDOPA AND LEVODOPA [Concomitant]
     Route: 048
  7. MAGNESIUM OXIDE [Concomitant]
     Route: 048
     Dates: start: 20071004
  8. ALLOPURINOL [Concomitant]
     Route: 048
     Dates: start: 20071003
  9. ASPIRIN [Concomitant]
     Route: 048
     Dates: start: 20071003
  10. DAI-KENCHU-TO [Concomitant]
     Route: 048
     Dates: start: 20071004

REACTIONS (3)
  - BLOOD PRESSURE DECREASED [None]
  - BRADYCARDIA [None]
  - DRUG INTERACTION [None]
